FAERS Safety Report 8923409 (Version 2)
Quarter: 2013Q1

REPORT INFORMATION
  Report Type: Spontaneous
  Country: IT (occurrence: IT)
  Receive Date: 20121123
  Receipt Date: 20130104
  Transmission Date: 20140127
  Serious: Yes (Hospitalization)
  Sender: FDA-Public Use
  Company Number: IT-JNJFOC-20121109411

PATIENT
  Age: 66 Year
  Sex: Female

DRUGS (1)
  1. CONTRAMAL [Suspect]
     Indication: PAIN
     Route: 048
     Dates: start: 20121024, end: 20121024

REACTIONS (5)
  - Tremor [Recovering/Resolving]
  - Vomiting [Recovering/Resolving]
  - Sopor [Recovering/Resolving]
  - Drug dispensing error [Recovering/Resolving]
  - Overdose [Unknown]
